FAERS Safety Report 7978536-6 (Version None)
Quarter: 2011Q4

REPORT INFORMATION
  Report Type: 
  Country: None (occurrence: None)
  Receive Date: 20111207
  Receipt Date: 20111125
  Transmission Date: 20120403
  Serious: Yes (Hospitalization)
  Sender: FDA-Public Use
  Company Number: 2011SP055222

PATIENT
  Age: 69 Year
  Sex: Male

DRUGS (1)
  1. TEMODAL [Suspect]
     Indication: MALIGNANT GLIOMA
     Dosage: 100 MG/M2;QD;PO
     Route: 048
     Dates: start: 20081008, end: 20110601

REACTIONS (1)
  - PANCYTOPENIA [None]
